FAERS Safety Report 25873773 (Version 1)
Quarter: 2025Q4

REPORT INFORMATION
  Report Type: Spontaneous
  Country: US (occurrence: US)
  Receive Date: 20251002
  Receipt Date: 20251002
  Transmission Date: 20260118
  Serious: No
  Sender: INTRA-CELLULAR THERAPIES
  Company Number: US-INTRA-CELLULAR THERAPIES, INC.-2025ICT01749

PATIENT
  Age: 30 Year
  Sex: Female

DRUGS (3)
  1. CAPLYTA [Suspect]
     Active Substance: LUMATEPERONE
     Indication: Bipolar II disorder
     Dosage: 42 MG
     Dates: start: 20250820
  2. QUETIAPINE [Suspect]
     Active Substance: QUETIAPINE
     Dosage: UNK
     Dates: end: 20250819
  3. LITHIUM [Concomitant]
     Active Substance: LITHIUM
     Dosage: 600 MG, 1X/DAY AT BEDTIME

REACTIONS (6)
  - Feeling of body temperature change [Unknown]
  - Myalgia [Unknown]
  - Paraesthesia [Unknown]
  - Muscle twitching [Unknown]
  - Headache [Unknown]
  - Tremor [Unknown]

NARRATIVE: CASE EVENT DATE: 20250801
